FAERS Safety Report 7223416-7 (Version None)
Quarter: 2011Q1

REPORT INFORMATION
  Report Type: 
  Country: None (occurrence: None)
  Receive Date: 20110112
  Receipt Date: 20100614
  Transmission Date: 20110831
  Serious: No
  Sender: FDA-Public Use
  Company Number: US-ALLERGAN-1007772US

PATIENT
  Sex: Male

DRUGS (8)
  1. TIMOLOL MALEATE [Concomitant]
  2. RESTASIS [Suspect]
     Indication: DRY EYE
     Dosage: UNK
     Route: 047
  3. ZINC [Concomitant]
  4. VITAMIN E [Concomitant]
  5. CALCIUM [Concomitant]
  6. SYSTANE [Concomitant]
  7. MULTI-VITAMIN [Concomitant]
  8. FLAX SEED OIL [Concomitant]

REACTIONS (1)
  - EYE IRRITATION [None]
